FAERS Safety Report 13591564 (Version 1)
Quarter: 2017Q2

REPORT INFORMATION
  Report Type: Spontaneous
  Country: US (occurrence: US)
  Receive Date: 20170530
  Receipt Date: 20170530
  Transmission Date: 20170830
  Serious: Yes (Other)
  Sender: FDA-Public Use
  Company Number: US-MALLINCKRODT-T201702166

PATIENT
  Age: 77 Year
  Sex: Female
  Weight: 87 kg

DRUGS (2)
  1. OXYCODONE [Concomitant]
     Active Substance: OXYCODONE
     Indication: PAIN
  2. FENTANYL TRANSDERMAL SYSTEM [Suspect]
     Active Substance: FENTANYL
     Indication: PAIN
     Dosage: 25 MCG/HR, Q72HR
     Route: 062
     Dates: start: 201609

REACTIONS (8)
  - Musculoskeletal pain [Not Recovered/Not Resolved]
  - Arthritis [Unknown]
  - Multiple use of single-use product [Unknown]
  - Ankle fracture [Unknown]
  - Bone disorder [Unknown]
  - Product adhesion issue [Unknown]
  - Drug effect variable [Unknown]
  - Drug ineffective [Unknown]

NARRATIVE: CASE EVENT DATE: 201702
